FAERS Safety Report 5148037-1 (Version None)
Quarter: 2006Q4

REPORT INFORMATION
  Report Type: 
  Country: None (occurrence: None)
  Receive Date: 20061110
  Receipt Date: 20061031
  Transmission Date: 20070319
  Serious: Yes (Other)
  Sender: FDA-Public Use
  Company Number: BW-GLAXOSMITHKLINE-B0445528A

PATIENT
  Age: 27 Year
  Sex: Female

DRUGS (4)
  1. LAMIVUDINE AND ZIDOVUDINE [Suspect]
     Indication: ANTIVIRAL PROPHYLAXIS
     Route: 048
     Dates: start: 20060922
  2. NEVIRAPINE [Suspect]
     Indication: ANTIVIRAL PROPHYLAXIS
     Route: 048
     Dates: start: 20060922
  3. CEFTRIAXONE [Concomitant]
  4. METRONIDAZOLE [Concomitant]

REACTIONS (7)
  - BLOOD PRESSURE INCREASED [None]
  - FOETAL GROWTH RETARDATION [None]
  - OLIGOHYDRAMNIOS [None]
  - PRE-ECLAMPSIA [None]
  - PREMATURE LABOUR [None]
  - PROTEINURIA [None]
  - STILLBIRTH [None]
